FAERS Safety Report 18282073 (Version 1)
Quarter: 2020Q3

REPORT INFORMATION
  Report Type: Spontaneous
  Country: AU (occurrence: AU)
  Receive Date: 20200918
  Receipt Date: 20200918
  Transmission Date: 20201103
  Serious: No
  Sender: FDA-Public Use
  Company Number: AU-GLAXOSMITHKLINE-AU2020166893

PATIENT
  Age: 54 Year
  Sex: Female

DRUGS (2)
  1. NICABATE [Suspect]
     Active Substance: NICOTINE
     Dosage: 21 MG
  2. NICABATE [Suspect]
     Active Substance: NICOTINE
     Indication: SMOKING CESSATION THERAPY
     Dosage: 21 MG
     Route: 062

REACTIONS (2)
  - Inappropriate schedule of product administration [Unknown]
  - Product complaint [Unknown]
